FAERS Safety Report 7132383-6 (Version None)
Quarter: 2010Q4

REPORT INFORMATION
  Report Type: 
  Country: None (occurrence: None)
  Receive Date: 20101202
  Receipt Date: 20101115
  Transmission Date: 20110411
  Serious: Yes (Death)
  Sender: FDA-Public Use
  Company Number: JP-PFIZER INC-JP-WYE-H09355109

PATIENT
  Age: 84 Year
  Sex: Male
  Weight: 55 kg

DRUGS (12)
  1. ANCARON [Suspect]
     Indication: VENTRICULAR FIBRILLATION
     Dosage: 100.0 MG, 2X/DAY
     Route: 048
     Dates: start: 20071010, end: 20071110
  2. ANCARON [Suspect]
     Dosage: 17 ML/HR (CONCENTRATION 1.5 MG/ML)
     Route: 042
     Dates: start: 20071010, end: 20071013
  3. ASPIRIN [Concomitant]
     Dosage: UNK
     Route: 048
     Dates: start: 20071004, end: 20071110
  4. LIPITOR [Concomitant]
     Dosage: UNK
     Route: 048
     Dates: start: 20071004, end: 20071110
  5. ARICEPT [Concomitant]
     Dosage: UNK
     Route: 048
     Dates: start: 20071004, end: 20071110
  6. LIDOCAINE [Concomitant]
     Dosage: UNK
     Route: 065
     Dates: start: 20071010, end: 20071010
  7. SIGMART [Concomitant]
     Dosage: UNK
     Route: 048
     Dates: start: 20071004, end: 20071110
  8. NIFEKALANT HYDROCHLORIDE [Concomitant]
     Dosage: UNK
     Route: 042
     Dates: start: 20071010, end: 20071010
  9. PURSENNID [Concomitant]
     Dosage: UNK
     Route: 048
     Dates: start: 20071004, end: 20071110
  10. DOGMATYL [Concomitant]
     Dosage: UNK
     Route: 048
     Dates: start: 20071004, end: 20071110
  11. TICLOPIDINE HCL [Concomitant]
     Dosage: UNK
     Route: 048
     Dates: start: 20071004, end: 20071110
  12. WARFARIN [Concomitant]
     Dosage: UNK
     Route: 048
     Dates: start: 20071004, end: 20071110

REACTIONS (1)
  - DEATH [None]
